FAERS Safety Report 8894885 (Version 1)
Quarter: 2012Q4

REPORT INFORMATION
  Report Type: 
  Country: TR (occurrence: TR)
  Receive Date: 20121108
  Receipt Date: 20121108
  Transmission Date: 20130627
  Serious: Yes (Disabling)
  Sender: FDA-Public Use
  Company Number: TR-ASTRAZENECA-2012SE83265

PATIENT
  Sex: Male
  Weight: 120 kg

DRUGS (1)
  1. SEROQUEL [Suspect]
     Indication: INSOMNIA
     Route: 048
     Dates: start: 20120419

REACTIONS (2)
  - Abasia [Not Recovered/Not Resolved]
  - Pyrexia [Not Recovered/Not Resolved]
